FAERS Safety Report 11474335 (Version 1)
Quarter: 2015Q3

REPORT INFORMATION
  Report Type: Spontaneous
  Country: US (occurrence: None)
  Receive Date: 20150908
  Receipt Date: 20150908
  Transmission Date: 20151125
  Serious: Yes (Other)
  Sender: FDA-Public Use
  Company Number: None

PATIENT
  Age: 50 Year
  Sex: Female

DRUGS (1)
  1. LETAIRIS [Suspect]
     Active Substance: AMBRISENTAN
     Indication: PULMONARY EMBOLISM
     Route: 048
     Dates: start: 20150731, end: 20150831

REACTIONS (3)
  - Lung disorder [None]
  - Sinus congestion [None]
  - Condition aggravated [None]

NARRATIVE: CASE EVENT DATE: 20150821
